FAERS Safety Report 23023317 (Version 1)
Quarter: 2023Q4

REPORT INFORMATION
  Report Type: Spontaneous
  Country: US (occurrence: None)
  Receive Date: 20231003
  Receipt Date: 20231003
  Transmission Date: 20240110
  Serious: Yes (Other)
  Sender: FDA-Public Use
  Company Number: None

PATIENT
  Sex: Female

DRUGS (7)
  1. TOPIRAMATE [Suspect]
     Active Substance: TOPIRAMATE
  2. PHENOBARBITAL [Suspect]
     Active Substance: PHENOBARBITAL
  3. DILANTIN [Suspect]
     Active Substance: PHENYTOIN
  4. CARBAMAZEPINE [Suspect]
     Active Substance: CARBAMAZEPINE
  5. DEPAKOTE [Concomitant]
     Active Substance: DIVALPROEX SODIUM
  6. FELBATOL [Concomitant]
     Active Substance: FELBAMATE
  7. CLOBAZAM [Suspect]
     Active Substance: CLOBAZAM

REACTIONS (4)
  - Syncope [None]
  - Nephrolithiasis [None]
  - Drug ineffective [None]
  - Hepatitis [None]
